FAERS Safety Report 12461281 (Version 1)
Quarter: 2016Q2

REPORT INFORMATION
  Report Type: Spontaneous
  Country: US (occurrence: US)
  Receive Date: 20160613
  Receipt Date: 20160613
  Transmission Date: 20160815
  Serious: Yes (Other)
  Sender: FDA-Public Use
  Company Number: US-BAYER-2016-113831

PATIENT
  Age: 27 Year
  Sex: Female

DRUGS (1)
  1. MIRENA [Suspect]
     Active Substance: LEVONORGESTREL
     Dosage: 20 MCG/24HR, CONT
     Route: 015
     Dates: start: 20130531, end: 20140416

REACTIONS (4)
  - Appendicitis [None]
  - Uterine perforation [None]
  - Abdominal pain [None]
  - Leukocytosis [None]

NARRATIVE: CASE EVENT DATE: 201404
